FAERS Safety Report 5142622-9 (Version None)
Quarter: 2006Q4

REPORT INFORMATION
  Report Type: 
  Country: None (occurrence: None)
  Receive Date: 20061027
  Receipt Date: 20061009
  Transmission Date: 20070319
  Serious: Yes (Life-Threatening, Other)
  Sender: FDA-Public Use
  Company Number: US200610001616

PATIENT
  Sex: Male
  Weight: 95.2 kg

DRUGS (1)
  1. ZYPREXA [Suspect]
     Dosage: 30 MG , DAILY
     Dates: start: 19960101, end: 19960101

REACTIONS (6)
  - COMA [None]
  - COORDINATION ABNORMAL [None]
  - FALL [None]
  - GENERAL PHYSICAL HEALTH DETERIORATION [None]
  - PENIS DISORDER [None]
  - PRESCRIBED OVERDOSE [None]
